FAERS Safety Report 7621019-3 (Version None)
Quarter: 2011Q3

REPORT INFORMATION
  Report Type: 
  Country: None (occurrence: None)
  Receive Date: 20110719
  Receipt Date: 20101122
  Transmission Date: 20111222
  Serious: No
  Sender: FDA-Public Use
  Company Number: US-KINGPHARMUSA00001-K201001423

PATIENT
  Sex: Female

DRUGS (9)
  1. LEVOXYL [Suspect]
     Indication: THYROID HORMONE REPLACEMENT THERAPY
     Dosage: 100 MCG, QD
     Route: 048
     Dates: start: 20101121
  2. LANOXIN [Concomitant]
     Dosage: UNK
  3. FUROSEMIDE [Concomitant]
     Dosage: UNK
  4. LOVASTATIN [Concomitant]
     Dosage: UNK
  5. WARFARIN SODIUM [Concomitant]
     Dosage: UNK
  6. KLOR-CON [Concomitant]
     Dosage: UNK
  7. DIOVAN [Concomitant]
     Dosage: UNK
  8. TOPROL-XL [Concomitant]
     Dosage: UNK
  9. VERAPAMIL [Concomitant]

REACTIONS (2)
  - VOMITING [None]
  - ABDOMINAL PAIN UPPER [None]
